FAERS Safety Report 7716478-1 (Version None)
Quarter: 2011Q3

REPORT INFORMATION
  Report Type: 
  Country: None (occurrence: None)
  Receive Date: 20110829
  Receipt Date: 20110818
  Transmission Date: 20111222
  Serious: Yes (Hospitalization, Other)
  Sender: FDA-Public Use
  Company Number: US-BAYER-2010-008236

PATIENT
  Age: 28 Year
  Sex: Female
  Weight: 58.957 kg

DRUGS (8)
  1. ACETAMINOPHEN AND HYDROCODONE BITARTRATE [Concomitant]
  2. YAZ [Suspect]
     Indication: PRODUCT USED FOR UNKNOWN INDICATION
     Dosage: UNK
     Dates: start: 20090201, end: 20090301
  3. CITALOPRAM [Concomitant]
  4. VICODIN [Concomitant]
  5. CEPHALEXIN [Concomitant]
  6. DIAZEPAM [Concomitant]
  7. CONAZEPAM [Concomitant]
  8. MELOXICAM [Concomitant]

REACTIONS (4)
  - HEPATIC NEOPLASM [None]
  - FOCAL NODULAR HYPERPLASIA [None]
  - CHOLECYSTITIS CHRONIC [None]
  - GALLBLADDER DISORDER [None]
